APPROVED DRUG PRODUCT: TOPOTECAN HYDROCHLORIDE
Active Ingredient: TOPOTECAN HYDROCHLORIDE
Strength: EQ 4MG BASE/VIAL
Dosage Form/Route: INJECTABLE;INJECTION
Application: A091542 | Product #001
Applicant: RISING PHARMA HOLDINGS INC
Approved: Aug 28, 2012 | RLD: No | RS: No | Type: DISCN